FAERS Safety Report 6655965-4 (Version None)
Quarter: 2010Q1

REPORT INFORMATION
  Report Type: 
  Country: None (occurrence: None)
  Receive Date: 20100329
  Receipt Date: 20100324
  Transmission Date: 20100710
  Serious: Yes (Death, Other)
  Sender: FDA-Public Use
  Company Number: PHEH2010US03144

PATIENT
  Sex: Female
  Weight: 42 kg

DRUGS (3)
  1. EXJADE [Suspect]
     Indication: MYELODYSPLASTIC SYNDROME
     Dosage: 500, 2 PILLS DAILY
     Route: 048
     Dates: start: 20091026
  2. EXJADE [Suspect]
     Indication: IRON OVERLOAD
     Dosage: 500MG, 1 PILL DAILY
     Route: 048
  3. EXJADE [Suspect]
     Dosage: 500 MG, TID

REACTIONS (6)
  - AORTIC STENOSIS [None]
  - CIRCULATORY COLLAPSE [None]
  - COMA [None]
  - CONCOMITANT DISEASE PROGRESSION [None]
  - LOSS OF CONSCIOUSNESS [None]
  - MALIGNANT NEOPLASM PROGRESSION [None]
